FAERS Safety Report 5718983-6 (Version None)
Quarter: 2008Q2

REPORT INFORMATION
  Report Type: 
  Country: None (occurrence: None)
  Receive Date: 20080425
  Receipt Date: 20080411
  Transmission Date: 20081010
  Serious: Yes (Hospitalization)
  Sender: FDA-Public Use
  Company Number: PHNU2008DE01527

PATIENT
  Sex: Male

DRUGS (4)
  1. TEGRETOL [Suspect]
     Dosage: 400 MG/DAY
     Route: 065
     Dates: start: 20050803, end: 20050808
  2. TEGRETOL [Suspect]
     Dosage: 200 MG/DAY
     Route: 065
     Dates: start: 20050809
  3. ZYPREXA [Suspect]
     Dosage: 10 MG/DAY
     Route: 065
     Dates: start: 20050802
  4. CYMBALTA [Suspect]
     Dosage: 60 MG/DAY
     Route: 065
     Dates: start: 20050802, end: 20050809

REACTIONS (4)
  - DRUG INTERACTION [None]
  - HYPERTENSION [None]
  - ORTHOSTATIC HYPOTENSION [None]
  - SYNCOPE [None]
